FAERS Safety Report 10555662 (Version 1)
Quarter: 2014Q4

REPORT INFORMATION
  Report Type: Spontaneous
  Country: FR (occurrence: FR)
  Receive Date: 20141030
  Receipt Date: 20141030
  Transmission Date: 20150529
  Serious: Yes (Other)
  Sender: FDA-Public Use
  Company Number: FR-ELI_LILLY_AND_COMPANY-FR201410007385

PATIENT
  Age: 50 Year
  Sex: Female

DRUGS (2)
  1. CISPLATINE [Concomitant]
     Active Substance: CISPLATIN
     Dosage: UNK
     Dates: start: 20140129
  2. ALIMTA [Suspect]
     Active Substance: PEMETREXED DISODIUM
     Indication: BRONCHIAL CARCINOMA
     Dosage: 1 COURSE EVERY 3 WEEKS
     Route: 042
     Dates: start: 20140129, end: 20140908

REACTIONS (3)
  - Face oedema [Not Recovered/Not Resolved]
  - Oedema peripheral [Not Recovered/Not Resolved]
  - Dermo-hypodermitis [Not Recovered/Not Resolved]

NARRATIVE: CASE EVENT DATE: 201405
